FAERS Safety Report 7095937-1 (Version None)
Quarter: 2010Q4

REPORT INFORMATION
  Report Type: 
  Country: None (occurrence: None)
  Receive Date: 20101102
  Receipt Date: 20101025
  Transmission Date: 20110411
  Serious: Yes (Other)
  Sender: FDA-Public Use
  Company Number: 2010SP057119

PATIENT
  Age: 34 Year
  Sex: Female
  Weight: 65 kg

DRUGS (2)
  1. NUVARING [Suspect]
     Indication: CONTRACEPTION
     Dosage: QM;VAG
     Route: 067
     Dates: start: 20080505
  2. ALOE VERA [Concomitant]

REACTIONS (5)
  - ASTHMA [None]
  - DISEASE RECURRENCE [None]
  - INFLUENZA [None]
  - METRORRHAGIA [None]
  - SINUSITIS [None]
